FAERS Safety Report 6423475-5 (Version None)
Quarter: 2009Q4

REPORT INFORMATION
  Report Type: 
  Country: None (occurrence: None)
  Receive Date: 20091102
  Receipt Date: 20091023
  Transmission Date: 20100525
  Serious: Yes (Other)
  Sender: FDA-Public Use
  Company Number: ZA-ABBOTT-09P-143-0604739-00

PATIENT
  Age: 8 Year
  Sex: Female

DRUGS (1)
  1. EPILIM TABLETS [Suspect]
     Indication: EPILEPSY
     Route: 048

REACTIONS (4)
  - CONTUSION [None]
  - CONVULSION [None]
  - OVERDOSE [None]
  - PSYCHOMOTOR HYPERACTIVITY [None]
